FAERS Safety Report 21475770 (Version 1)
Quarter: 2022Q4

REPORT INFORMATION
  Report Type: Spontaneous
  Country: US (occurrence: US)
  Receive Date: 20221019
  Receipt Date: 20221019
  Transmission Date: 20230112
  Serious: Yes (Hospitalization, Other)
  Sender: FDA-Public Use
  Company Number: US-BRISTOL-MYERS SQUIBB COMPANY-2022-123051

PATIENT
  Age: 84 Year
  Sex: Male

DRUGS (1)
  1. ELIQUIS [Suspect]
     Active Substance: APIXABAN
     Indication: Myocardial infarction
     Dosage: =
     Route: 048
     Dates: start: 2021

REACTIONS (3)
  - Cardiac failure [Unknown]
  - Pericardial effusion [Unknown]
  - Off label use [Unknown]

NARRATIVE: CASE EVENT DATE: 20221006
